FAERS Safety Report 14383816 (Version 1)
Quarter: 2018Q1

REPORT INFORMATION
  Report Type: Report from Study
  Country: JP (occurrence: JP)
  Receive Date: 20180115
  Receipt Date: 20180115
  Transmission Date: 20180509
  Serious: Yes (Other)
  Sender: FDA-Public Use
  Company Number: JP-VIFOR (INTERNATIONAL) INC.-VIT-2016-04226

PATIENT
  Age: 70 Year
  Sex: Female
  Weight: 47.45 kg

DRUGS (21)
  1. CRESTOR [Concomitant]
     Active Substance: ROSUVASTATIN CALCIUM
     Route: 048
  2. CHINESE MEDICINE [Concomitant]
     Active Substance: UNSPECIFIED INGREDIENT
     Indication: MUSCLE SPASMS
     Route: 048
  3. SENNOSIDE [Suspect]
     Active Substance: SENNOSIDES
     Route: 048
     Dates: end: 20161030
  4. EPOETIN ALFA [Concomitant]
     Active Substance: ERYTHROPOIETIN
     Dates: start: 20160829, end: 20170329
  5. LENDORMIN [Concomitant]
     Active Substance: BROTIZOLAM
     Indication: INSOMNIA
     Route: 048
  6. L-CARTIN FF [Concomitant]
     Active Substance: LEVOCARNITINE
     Indication: CARNITINE DECREASED
     Route: 042
     Dates: end: 20170308
  7. SENNOSIDE [Suspect]
     Active Substance: SENNOSIDES
     Route: 048
     Dates: start: 20170315
  8. EPOETIN ALFA [Concomitant]
     Active Substance: ERYTHROPOIETIN
     Dates: end: 20160824
  9. KIKLIN [Concomitant]
     Active Substance: BIXALOMER
     Indication: HYPERPHOSPHATAEMIA
     Route: 048
     Dates: end: 20161009
  10. VELPHORO [Suspect]
     Active Substance: FERRIC OXYHYDROXIDE
     Route: 048
     Dates: start: 20161010
  11. L-CARTIN FF [Concomitant]
     Active Substance: LEVOCARNITINE
     Indication: MUSCLE SPASMS
  12. EPADEL [Concomitant]
     Active Substance: ICOSAPENT
     Route: 048
  13. GLUCOSE [Concomitant]
     Active Substance: DEXTROSE
     Indication: BLOOD PRESSURE DECREASED
  14. EPOETIN ALFA [Concomitant]
     Active Substance: ERYTHROPOIETIN
     Dates: start: 20160826, end: 20160826
  15. EPOETIN ALFA [Concomitant]
     Active Substance: ERYTHROPOIETIN
     Dates: start: 20170331
  16. REBAMIPIDE [Concomitant]
     Active Substance: REBAMIPIDE
     Indication: CHRONIC GASTRITIS
     Route: 048
  17. TAKECAB [Concomitant]
     Active Substance: VONOPRAZAN FUMURATE
     Route: 048
     Dates: start: 20170802
  18. VELPHORO [Suspect]
     Active Substance: FERRIC OXYHYDROXIDE
     Indication: HYPERPHOSPHATAEMIA
     Route: 048
     Dates: start: 20160418, end: 20161009
  19. SENNOSIDE [Suspect]
     Active Substance: SENNOSIDES
     Indication: PRODUCT USED FOR UNKNOWN INDICATION
     Route: 048
     Dates: start: 20161031, end: 20170514
  20. KIKLIN [Concomitant]
     Active Substance: BIXALOMER
     Route: 048
     Dates: start: 20161010
  21. ROZEREM [Concomitant]
     Active Substance: RAMELTEON
     Route: 048
     Dates: start: 20170802, end: 20170820

REACTIONS (12)
  - Iron deficiency [Recovered/Resolved]
  - Influenza [Recovered/Resolved]
  - Cystitis [Recovered/Resolved]
  - Dysuria [Recovered/Resolved]
  - Hyperparathyroidism secondary [Unknown]
  - Condition aggravated [Unknown]
  - Gastritis [Recovering/Resolving]
  - Faeces soft [Recovering/Resolving]
  - Nausea [Recovered/Resolved]
  - Complication associated with device [Recovered/Resolved]
  - Abdominal pain [Recovered/Resolved]
  - Urticaria [Recovering/Resolving]

NARRATIVE: CASE EVENT DATE: 20160425
